FAERS Safety Report 7372965-X (Version None)
Quarter: 2011Q1

REPORT INFORMATION
  Report Type: 
  Country: None (occurrence: None)
  Receive Date: 20110324
  Receipt Date: 20110317
  Transmission Date: 20110831
  Serious: Yes (Death, Other)
  Sender: FDA-Public Use
  Company Number: NO-ELI_LILLY_AND_COMPANY-NO201103005692

PATIENT
  Sex: Female

DRUGS (6)
  1. ELECTROLYTE [Concomitant]
     Indication: PRODUCTIVE COUGH
     Dosage: 200 MG, 2/D
     Route: 048
  2. ACETYLCYSTEINE [Concomitant]
     Indication: CONSTIPATION
     Dosage: 15 ML, UNK
     Route: 048
  3. KLEXANE [Concomitant]
     Indication: IMMOBILISATION PROLONGED
     Dosage: 20 MG, DAILY (1/D)
     Route: 058
     Dates: start: 20110101
  4. RINGER-ACETAT [Concomitant]
     Indication: DEHYDRATION
     Dosage: 1000 ML, UNK
     Route: 042
  5. ZYPREXA [Suspect]
     Indication: PSYCHOTIC DISORDER
     Dosage: 5 MG, DAILY (1/D)
     Route: 048
     Dates: start: 20101230, end: 20101230
  6. ZYPREXA [Suspect]
     Dosage: 10 MG, DAILY (1/D)
     Route: 048
     Dates: start: 20110101

REACTIONS (4)
  - RESPIRATORY FAILURE [None]
  - GLYCOSYLATED HAEMOGLOBIN INCREASED [None]
  - C-REACTIVE PROTEIN INCREASED [None]
  - PULMONARY EMBOLISM [None]
